FAERS Safety Report 7991069-6 (Version None)
Quarter: 2011Q4

REPORT INFORMATION
  Report Type: 
  Country: None (occurrence: None)
  Receive Date: 20111219
  Receipt Date: 20111205
  Transmission Date: 20120403
  Serious: Yes (Hospitalization, Other)
  Sender: FDA-Public Use
  Company Number: JP-ROCHE-726482

PATIENT
  Sex: Female

DRUGS (98)
  1. PREDNISOLONE [Suspect]
     Route: 048
     Dates: start: 20101008, end: 20110510
  2. KALIMATE [Concomitant]
     Indication: RENAL FAILURE
     Dosage: DOSE FORM REPORTED AS POR
     Route: 048
     Dates: start: 20100714, end: 20100805
  3. BACTRIM [Concomitant]
     Route: 048
  4. ALBUMINAR [Concomitant]
     Indication: CASTLEMAN'S DISEASE
     Dosage: ROUTE: INTRAVENOUS (NOT OTHERWISE SPECIFIED)
     Route: 042
     Dates: start: 20100715, end: 20100718
  5. ALBUMIN TANNATE [Concomitant]
     Route: 048
     Dates: start: 20100806, end: 20100909
  6. LASIX [Concomitant]
     Route: 042
     Dates: start: 20100705, end: 20100722
  7. LASIX [Concomitant]
     Route: 042
     Dates: start: 20110525, end: 20110621
  8. LENDORMIN [Concomitant]
     Route: 048
     Dates: start: 20100902, end: 20100903
  9. RISPERDAL [Concomitant]
     Route: 048
     Dates: start: 20100923, end: 20101111
  10. MAGMITT [Concomitant]
     Route: 048
  11. HEPARIN SODIUM [Concomitant]
     Route: 042
     Dates: start: 20100717, end: 20100810
  12. HEPARIN SODIUM [Concomitant]
     Route: 042
     Dates: start: 20100908, end: 20100908
  13. GANCICLOVIR [Suspect]
     Dates: start: 20100816
  14. PREDNISOLONE [Suspect]
     Indication: CASTLEMAN'S DISEASE
     Route: 048
     Dates: start: 20100713, end: 20100722
  15. METHYLPREDNISOLONE SODIUM SUCCINATE [Suspect]
     Indication: CASTLEMAN'S DISEASE
     Route: 042
     Dates: start: 20100721, end: 20100723
  16. VALGANCICLOVIR [Concomitant]
     Indication: PROPHYLAXIS
     Route: 048
     Dates: start: 20101115, end: 20101227
  17. ALBUMINAR [Concomitant]
     Route: 042
     Dates: start: 20100726, end: 20100726
  18. ALBUMINAR [Concomitant]
     Route: 042
     Dates: start: 20100920, end: 20100920
  19. LAXOBERON [Concomitant]
     Indication: CONSTIPATION
     Dosage: DOSE FORM REPORTED AS PERORAL LIQUID PREPARATION
     Route: 048
     Dates: start: 20100801, end: 20100802
  20. LASIX [Concomitant]
     Route: 042
     Dates: start: 20100715, end: 20100715
  21. RISPERDAL [Concomitant]
     Route: 048
     Dates: start: 20100913, end: 20100920
  22. ALDACTONE [Concomitant]
     Dosage: DOSE FORM: PERORAL AGENT
     Route: 054
     Dates: start: 20101005, end: 20101104
  23. POTASSIUM L-ASPARTATE [Concomitant]
     Route: 042
     Dates: start: 20100830, end: 20100916
  24. PREDNISOLONE [Suspect]
     Route: 048
     Dates: start: 20100824, end: 20100902
  25. PREDNISOLONE [Suspect]
     Route: 048
     Dates: start: 20110601, end: 20110607
  26. RABEPRAZOLE SODIUM [Concomitant]
     Indication: PROPHYLAXIS
     Route: 048
  27. LASIX [Concomitant]
     Route: 042
     Dates: start: 20100813, end: 20100830
  28. POSTERISAN [Concomitant]
     Indication: HAEMORRHOIDS
     Dosage: PROPER QUANTI
     Route: 061
     Dates: start: 20100629, end: 20100831
  29. NOVAMIN [Concomitant]
     Indication: PROPHYLAXIS
     Route: 048
     Dates: start: 20101016, end: 20101227
  30. GANCICLOVIR [Suspect]
     Dates: start: 20100813
  31. ACTEMRA [Suspect]
     Route: 041
     Dates: start: 20100922, end: 20101020
  32. ACTEMRA [Suspect]
     Route: 041
     Dates: start: 20101104, end: 20101104
  33. ACTEMRA [Suspect]
     Route: 041
     Dates: start: 20101117, end: 20110630
  34. ALLOPURINOL [Concomitant]
     Indication: HYPERURICAEMIA
     Route: 048
     Dates: start: 20100714, end: 20101109
  35. LEVOFLOXACIN [Concomitant]
     Route: 048
     Dates: start: 20100806, end: 20100806
  36. LEVOFLOXACIN [Concomitant]
     Route: 048
     Dates: start: 20100810, end: 20100815
  37. LASIX [Concomitant]
     Indication: RENAL FAILURE
     Route: 042
     Dates: start: 20100805, end: 20100805
  38. LASIX [Concomitant]
     Route: 042
     Dates: start: 20100921, end: 20100928
  39. LASIX [Concomitant]
     Route: 042
     Dates: start: 20100714, end: 20100714
  40. LORAZEPAM [Concomitant]
     Route: 048
     Dates: start: 20110608, end: 20110614
  41. LENDORMIN [Concomitant]
     Route: 048
     Dates: start: 20100904, end: 20110621
  42. RISPERDAL [Concomitant]
     Route: 048
  43. PYRINAZIN [Concomitant]
     Indication: CASTLEMAN'S DISEASE
     Route: 048
     Dates: start: 20100707, end: 20110628
  44. POTASSIUM L-ASPARTATE [Concomitant]
     Route: 042
     Dates: start: 20100823, end: 20100829
  45. CEFAZOLIN [Concomitant]
     Indication: PROPHYLAXIS
     Route: 042
     Dates: start: 20110314, end: 20110321
  46. CEFAZOLIN [Concomitant]
     Route: 042
     Dates: start: 20110502, end: 20110504
  47. PREDNISOLONE [Suspect]
     Route: 048
     Dates: start: 20100903, end: 20100909
  48. PREDNISOLONE [Suspect]
     Route: 048
  49. PREDNISOLONE AND PREDNISOLONE ACETATE AND PREDNISOLONE SODIUM SUCCINAT [Suspect]
     Route: 041
     Dates: start: 20100818, end: 20100824
  50. ALBUMINAR [Concomitant]
     Route: 042
     Dates: start: 20100720, end: 20100720
  51. LEVOFLOXACIN [Concomitant]
     Route: 048
     Dates: start: 20100808, end: 20100808
  52. LASIX [Concomitant]
     Route: 042
     Dates: start: 20100806, end: 20100811
  53. LASIX [Concomitant]
     Route: 042
     Dates: start: 20100919, end: 20100919
  54. LORAZEPAM [Concomitant]
     Indication: INSOMNIA
     Route: 048
     Dates: start: 20100804, end: 20110510
  55. RISPERDAL [Concomitant]
     Route: 048
     Dates: start: 20100902, end: 20100902
  56. RISPERDAL [Concomitant]
     Route: 048
     Dates: start: 20100903, end: 20100909
  57. RISPERDAL [Concomitant]
     Route: 048
     Dates: start: 20100921, end: 20100922
  58. MAGMITT [Concomitant]
     Route: 048
     Dates: start: 20110518, end: 20110610
  59. HEPARIN SODIUM [Concomitant]
     Route: 042
     Dates: start: 20100907, end: 20100907
  60. CYMBALTA [Concomitant]
     Indication: DEPRESSION
     Route: 048
     Dates: start: 20110711
  61. PURSENNID [Concomitant]
     Dosage: AS NEEDED
     Route: 048
     Dates: start: 20110505, end: 20110505
  62. PREDNISOLONE AND PREDNISOLONE ACETATE AND PREDNISOLONE SODIUM SUCCINAT [Suspect]
     Route: 041
     Dates: start: 20100724, end: 20100805
  63. PREDNISOLONE AND PREDNISOLONE ACETATE AND PREDNISOLONE SODIUM SUCCINAT [Suspect]
     Route: 041
     Dates: start: 20100806, end: 20100810
  64. MORPHINE [Concomitant]
     Indication: CASTLEMAN'S DISEASE
     Dosage: DOSE FORM REPORTED AS PERORAL LIQUID PREPARATION
     Route: 048
     Dates: start: 20100716, end: 20101227
  65. ALBUMINAR [Concomitant]
     Route: 042
     Dates: start: 20100929, end: 20100929
  66. LASIX [Concomitant]
     Route: 042
     Dates: start: 20100831, end: 20100907
  67. LASIX [Concomitant]
     Route: 042
     Dates: start: 20100908, end: 20100913
  68. LASIX [Concomitant]
     Route: 042
  69. HEPARIN SODIUM [Concomitant]
     Route: 042
     Dates: start: 20100821, end: 20100901
  70. ACTEMRA [Suspect]
     Indication: CASTLEMAN'S DISEASE
     Route: 041
     Dates: start: 20100727, end: 20100914
  71. ACTEMRA [Suspect]
     Route: 041
  72. PREDNISOLONE [Suspect]
     Route: 048
     Dates: start: 20110511, end: 20110531
  73. FLUCONAZOLE [Concomitant]
     Indication: PROPHYLAXIS
     Route: 048
     Dates: start: 20100713, end: 20101226
  74. BACTRIM [Concomitant]
     Indication: PROPHYLAXIS
     Route: 048
     Dates: start: 20100713, end: 20100723
  75. LASIX [Concomitant]
     Route: 042
     Dates: start: 20100812, end: 20100812
  76. LASIX [Concomitant]
     Route: 042
     Dates: start: 20100930, end: 20101001
  77. LORAZEPAM [Concomitant]
     Route: 048
     Dates: start: 20110511, end: 20110607
  78. LENDORMIN [Concomitant]
     Indication: INSOMNIA
     Route: 048
     Dates: start: 20100819, end: 20100826
  79. LENDORMIN [Concomitant]
     Route: 048
     Dates: start: 20100828, end: 20100901
  80. ACYCLOVIR [Concomitant]
     Indication: PROPHYLAXIS
     Route: 048
  81. MAGMITT [Concomitant]
     Indication: CONSTIPATION
     Route: 048
     Dates: start: 20100921, end: 20110515
  82. FENTANYL-100 [Concomitant]
     Dosage: DOSE FORM: TAPE, 2.1MG24.2MG
     Route: 062
  83. ASPIRIN [Concomitant]
     Indication: PROPHYLAXIS
     Route: 048
  84. HEPARIN SODIUM [Concomitant]
     Route: 042
     Dates: start: 20100815, end: 20100815
  85. HEPARIN SODIUM [Concomitant]
     Route: 042
     Dates: start: 20100903, end: 20100906
  86. GASMOTIN [Concomitant]
     Indication: PROPHYLAXIS
     Route: 048
     Dates: start: 20110711
  87. PURSENNID [Concomitant]
     Indication: CONSTIPATION
     Dosage: AS NEEDED
     Route: 048
     Dates: start: 20110411, end: 20110411
  88. MUCOSTA [Concomitant]
     Indication: PROPHYLAXIS
     Dosage: AS NEEDED
     Route: 048
     Dates: start: 20110615, end: 20110630
  89. GANCICLOVIR [Suspect]
     Indication: PRODUCT USED FOR UNKNOWN INDICATION
     Dates: start: 20100810
  90. PREDNISOLONE [Suspect]
     Route: 048
     Dates: start: 20100910, end: 20101007
  91. PREDNISOLONE AND PREDNISOLONE ACETATE AND PREDNISOLONE SODIUM SUCCINAT [Suspect]
     Indication: CASTLEMAN'S DISEASE
     Route: 041
     Dates: start: 20100718, end: 20100721
  92. PREDNISOLONE AND PREDNISOLONE ACETATE AND PREDNISOLONE SODIUM SUCCINAT [Suspect]
     Route: 041
     Dates: start: 20100811, end: 20100817
  93. TIMOPTOL [Concomitant]
     Indication: GLAUCOMA
     Dosage: DOSING AMOUNT REPORTED AS 1GTT
     Route: 047
  94. ALBUMINAR [Concomitant]
     Route: 042
     Dates: start: 20100722, end: 20100724
  95. LASIX [Concomitant]
     Route: 042
     Dates: start: 20101005, end: 20101104
  96. ATARAX [Concomitant]
     Route: 040
     Dates: start: 20100816, end: 20100819
  97. CEFAZOLIN [Concomitant]
     Route: 042
     Dates: start: 20110511, end: 20110514
  98. PRORENAL [Concomitant]
     Route: 048

REACTIONS (6)
  - INFECTED SKIN ULCER [None]
  - CYTOMEGALOVIRUS INFECTION [None]
  - CALCIPHYLAXIS [None]
  - CEREBRAL INFARCTION [None]
  - URINARY TRACT INFECTION [None]
  - WHITE BLOOD CELL COUNT DECREASED [None]
